FAERS Safety Report 4371594-X (Version None)
Quarter: 2004Q2

REPORT INFORMATION
  Report Type: 
  Country: None (occurrence: None)
  Receive Date: 20040602
  Receipt Date: 20040521
  Transmission Date: 20050107
  Serious: Yes (Hospitalization, Other)
  Sender: FDA-Public Use
  Company Number: US-SHR-040-022640

PATIENT
  Age: 60 Year
  Sex: Male

DRUGS (3)
  1. BETASERON [Suspect]
     Indication: MULTIPLE SCLEROSIS
     Dosage: 8 MIU, EVERY 2D, SUBCUTANEOUS
     Route: 058
     Dates: start: 20020227, end: 20031113
  2. COUMADIN [Suspect]
  3. LIPITOR [Concomitant]

REACTIONS (9)
  - ASTHENIA [None]
  - CEREBRAL HAEMORRHAGE [None]
  - COGNITIVE DISORDER [None]
  - COMA [None]
  - FATIGUE [None]
  - HAEMORRHAGIC STROKE [None]
  - HYDROCEPHALUS [None]
  - SINUS TACHYCARDIA [None]
  - STAPHYLOCOCCAL INFECTION [None]
